FAERS Safety Report 15793969 (Version 2)
Quarter: 2019Q1

REPORT INFORMATION
  Report Type: Spontaneous
  Country: AU (occurrence: AU)
  Receive Date: 20190107
  Receipt Date: 20190211
  Transmission Date: 20190417
  Serious: Yes (Hospitalization)
  Sender: FDA-Public Use
  Company Number: AU-PFIZER INC-2019007995

PATIENT
  Age: 77 Year
  Sex: Male
  Weight: 71 kg

DRUGS (2)
  1. CRIZOTINIB [Suspect]
     Active Substance: CRIZOTINIB
     Indication: LUNG NEOPLASM MALIGNANT
     Dosage: 250 MG, DAILY
     Route: 048
     Dates: start: 20181224, end: 20190103
  2. CRIZOTINIB [Suspect]
     Active Substance: CRIZOTINIB
     Indication: NON-SMALL CELL LUNG CANCER

REACTIONS (10)
  - Mucosal inflammation [Recovered/Resolved]
  - Dysgeusia [Unknown]
  - Lymphadenopathy [Unknown]
  - Decreased appetite [Recovered/Resolved]
  - Pyrexia [Unknown]
  - Dehydration [Unknown]
  - Lethargy [Unknown]
  - Liver function test abnormal [Unknown]
  - Hepatotoxicity [Recovered/Resolved]
  - Renal cyst [Unknown]

NARRATIVE: CASE EVENT DATE: 20190103
